FAERS Safety Report 10267315 (Version 1)
Quarter: 2014Q2

REPORT INFORMATION
  Report Type: Spontaneous
  Country: US (occurrence: US)
  Receive Date: 20140630
  Receipt Date: 20140630
  Transmission Date: 20141212
  Serious: Yes (Other)
  Sender: FDA-Public Use
  Company Number: PHEH2014US012518

PATIENT
  Age: 77 Year
  Sex: Female

DRUGS (4)
  1. VOLTAREN [Suspect]
     Indication: PAIN
     Dosage: UNK UKN, UNK
     Route: 048
     Dates: start: 1995
  2. ACETAMINOPHEN [Concomitant]
     Dosage: UNK UKN, UNK
     Route: 048
  3. FLECTOR [Concomitant]
     Dosage: UNK UKN, UNK
     Route: 062
  4. ASPIRIN [Concomitant]
     Dosage: 81 MG, UNK
     Route: 048

REACTIONS (4)
  - Herpes zoster [Recovered/Resolved]
  - Rash [Recovered/Resolved]
  - Influenza [Unknown]
  - Blood glucose increased [Unknown]
